FAERS Safety Report 5122172-6 (Version None)
Quarter: 2006Q4

REPORT INFORMATION
  Report Type: 
  Country: None (occurrence: None)
  Receive Date: 20061003
  Receipt Date: 20060901
  Transmission Date: 20070319
  Serious: Yes (Death, Hospitalization)
  Sender: FDA-Public Use
  Company Number: 2006062858

PATIENT
  Age: 70 Year
  Sex: Male
  Weight: 95.2554 kg

DRUGS (3)
  1. CELEBREX [Suspect]
     Indication: ARTHRITIS
     Dosage: (1-2)
     Dates: end: 20021005
  2. CELEBREX [Suspect]
     Indication: NERVE COMPRESSION
     Dosage: (1-2)
     Dates: end: 20021005
  3. CELEBREX [Suspect]
     Indication: SPINAL COMPRESSION FRACTURE
     Dosage: (1-2)
     Dates: end: 20021005

REACTIONS (2)
  - MYOCARDIAL INFARCTION [None]
  - RENAL FAILURE [None]
